FAERS Safety Report 7754044-2 (Version None)
Quarter: 2011Q3

REPORT INFORMATION
  Report Type: 
  Country: None (occurrence: None)
  Receive Date: 20110915
  Receipt Date: 20110909
  Transmission Date: 20111222
  Serious: Yes (Hospitalization)
  Sender: FDA-Public Use
  Company Number: NL-ABBOTT-11P-114-0853367-00

PATIENT
  Sex: Female
  Weight: 62 kg

DRUGS (1)
  1. HUMIRA [Suspect]
     Indication: CROHN'S DISEASE
     Route: 058
     Dates: start: 20110830

REACTIONS (6)
  - ABDOMINAL PAIN [None]
  - ANURIA [None]
  - ABSCESS INTESTINAL [None]
  - INFLAMMATION [None]
  - CONSTIPATION [None]
  - LOCALISED INTRAABDOMINAL FLUID COLLECTION [None]
